FAERS Safety Report 24286177 (Version 1)
Quarter: 2024Q3

REPORT INFORMATION
  Report Type: Spontaneous
  Country: US (occurrence: None)
  Receive Date: 20240903
  Receipt Date: 20240903
  Transmission Date: 20241016
  Serious: No
  Sender: Public
  Company Number: None

PATIENT
  Age: 63 Year
  Sex: Female

DRUGS (1)
  1. COSENTYX [Suspect]
     Active Substance: SECUKINUMAB
     Indication: Psoriatic arthropathy
     Dosage: OTHER QUANTITY : 300MG (2 SYRINGES) ?FREQUENCY : MONTHLY?
     Route: 058
     Dates: start: 202402

REACTIONS (5)
  - Therapy interrupted [None]
  - Nasopharyngitis [None]
  - Product use issue [None]
  - Product dose omission in error [None]
  - Arthralgia [None]
